FAERS Safety Report 10195950 (Version 2)
Quarter: 2014Q2

REPORT INFORMATION
  Report Type: Spontaneous
  Country: US (occurrence: US)
  Receive Date: 20140527
  Receipt Date: 20140620
  Transmission Date: 20141212
  Serious: Yes (Hospitalization)
  Sender: FDA-Public Use
  Company Number: US-JNJFOC-20140507562

PATIENT
  Age: 60 Year
  Sex: Female

DRUGS (12)
  1. RISPERDAL [Suspect]
     Indication: DEPRESSION
     Dosage: 1/2 HS AND 1/2 B.D.
     Route: 048
     Dates: start: 20140131, end: 201402
  2. RISPERDAL [Suspect]
     Indication: DEPRESSION
     Dosage: 2 HS   1AM  1PM
     Route: 048
     Dates: start: 201405
  3. RISPERDAL [Suspect]
     Indication: DEPRESSION
     Dosage: 1 MG ONCE IN MORNING AND 3 MG AT NIGHT
     Route: 048
     Dates: start: 201402
  4. WELLBUTRIN [Concomitant]
     Indication: DEPRESSION
     Dosage: ONCE EVERYDAY IN MORNING, STARTED BEFORE 01-MAY-2010
     Route: 065
  5. PRISTIQ [Concomitant]
     Indication: DEPRESSION
     Dosage: ONCE EVERYDAY IN MORNING, STARTED BEFORE 01-MAY-2010,
     Route: 065
  6. LORAZEPAM [Concomitant]
     Indication: PAIN
     Dosage: STARTED BEFORE 01-MAY-2010
     Route: 065
  7. LORAZEPAM [Concomitant]
     Indication: DEPRESSION
     Dosage: STARTED BEFORE 01-MAY-2010
     Route: 065
  8. LORAZEPAM [Concomitant]
     Indication: ANXIETY
     Dosage: STARTED BEFORE 01-MAY-2010
     Route: 065
  9. THYROXINE [Concomitant]
     Indication: HYPOTHYROIDISM
     Route: 065
  10. MORPHINE [Concomitant]
     Indication: INTERVERTEBRAL DISC DEGENERATION
     Dosage: MORE THAN 15 YEARS
     Route: 065
  11. MORPHINE [Concomitant]
     Indication: COMPLEX REGIONAL PAIN SYNDROME
     Dosage: MORE THAN 15 YEARS
     Route: 065
  12. LORATADINE [Concomitant]
     Indication: MULTIPLE ALLERGIES
     Route: 065

REACTIONS (8)
  - Pulmonary embolism [Unknown]
  - Insomnia [Unknown]
  - Parosmia [Unknown]
  - Therapy change [Not Recovered/Not Resolved]
  - Off label use [Not Recovered/Not Resolved]
  - Sedation [Unknown]
  - Dysgeusia [Unknown]
  - Micturition disorder [Unknown]
